FAERS Safety Report 5374050-5 (Version None)
Quarter: 2007Q2

REPORT INFORMATION
  Report Type: 
  Country: None (occurrence: None)
  Receive Date: 20070627
  Receipt Date: 20070622
  Transmission Date: 20071010
  Serious: Yes (Death)
  Sender: FDA-Public Use
  Company Number: 163-21880-07061252

PATIENT
  Age: 73 Year
  Sex: Male

DRUGS (5)
  1. REVLIMID [Suspect]
     Indication: MULTIPLE MYELOMA
     Dosage: 25 MG, 1 IN 1 D, ORAL
     Route: 048
     Dates: start: 20070522
  2. DEXAMETHASONE TAB [Concomitant]
  3. NEXIUM [Concomitant]
  4. ATENOLOL [Concomitant]
  5. ASPIRIN [Concomitant]

REACTIONS (1)
  - PULMONARY EMBOLISM [None]
